FAERS Safety Report 24022796 (Version 3)
Quarter: 2024Q3

REPORT INFORMATION
  Report Type: Report from Study
  Country: TR (occurrence: TR)
  Receive Date: 20240627
  Receipt Date: 20240710
  Transmission Date: 20241017
  Serious: No
  Sender: ROCHE
  Company Number: TR-ROCHE-3337829

PATIENT
  Age: 83 Year
  Sex: Female

DRUGS (7)
  1. ALECTINIB [Suspect]
     Active Substance: ALECTINIB
     Indication: Lung cancer metastatic
     Route: 048
     Dates: start: 20190328
  2. ALECTINIB [Suspect]
     Active Substance: ALECTINIB
     Route: 048
     Dates: start: 20220204
  3. CORTAIR [Concomitant]
     Indication: Dyspnoea
     Route: 042
     Dates: start: 20240219, end: 20240222
  4. ALBUTEROL SULFATE\IPRATROPIUM BROMIDE [Concomitant]
     Active Substance: ALBUTEROL SULFATE\IPRATROPIUM BROMIDE
     Indication: Dyspnoea
     Route: 042
     Dates: start: 20240219, end: 20240222
  5. VENTOFOR COMBI FIX [Concomitant]
     Indication: Dyspnoea
     Route: 048
     Dates: start: 20240220
  6. NORVASC [Concomitant]
     Active Substance: AMLODIPINE BESYLATE
     Indication: Dyspnoea
     Route: 048
     Dates: start: 20240222
  7. FUROMID [Concomitant]
     Route: 042
     Dates: start: 20240219, end: 20240222

REACTIONS (1)
  - Glomerular filtration rate decreased [Recovering/Resolving]

NARRATIVE: CASE EVENT DATE: 20230308
